FAERS Safety Report 9234296 (Version 2)
Quarter: 2013Q2

REPORT INFORMATION
  Report Type: Report from Study
  Country: DE (occurrence: DE)
  Receive Date: 20130416
  Receipt Date: 20130521
  Transmission Date: 20140414
  Serious: Yes (Hospitalization, Other)
  Sender: FDA-Public Use
  Company Number: DE-CELGENEUS-062-21880-11102678

PATIENT
  Age: 76 Year
  Sex: Female
  Weight: 73 kg

DRUGS (10)
  1. REVLIMID [Suspect]
     Indication: PLASMA CELL MYELOMA
     Dosage: 25 MILLIGRAM
     Route: 048
     Dates: start: 20110228, end: 20110320
  2. REVLIMID [Suspect]
     Dosage: 15 MILLIGRAM
     Route: 048
     Dates: start: 20110406
  3. DEXAMETHASONE [Suspect]
     Indication: PLASMA CELL MYELOMA
     Dosage: 20 MILLIGRAM
     Route: 048
     Dates: start: 20110228
  4. ZOMETA [Concomitant]
     Indication: PLASMA CELL MYELOMA
     Route: 041
     Dates: start: 20100223
  5. OXYCODON [Concomitant]
     Indication: PAIN
     Route: 048
     Dates: start: 20100322
  6. OXYCODON [Concomitant]
     Route: 048
     Dates: start: 20100817
  7. CLEXANE [Concomitant]
     Indication: THROMBOSIS
     Dosage: .6
     Route: 058
     Dates: start: 20110322
  8. AMITRIPTYLIN [Concomitant]
     Indication: PAIN
     Route: 058
     Dates: start: 20110322
  9. OMEPRALOL [Concomitant]
     Indication: GASTROOESOPHAGEAL REFLUX DISEASE
     Dosage: 40 MILLIGRAM
     Route: 058
     Dates: start: 20100226
  10. ACICLOVIR [Concomitant]
     Indication: ORAL HERPES
     Dosage: 40 MILLIGRAM
     Route: 058
     Dates: start: 20110801, end: 201108

REACTIONS (2)
  - Gastrointestinal infection [Recovered/Resolved]
  - Atrial fibrillation [Recovered/Resolved]
